FAERS Safety Report 13073188 (Version 3)
Quarter: 2017Q1

REPORT INFORMATION
  Report Type: Spontaneous
  Country: IT (occurrence: IT)
  Receive Date: 20161229
  Receipt Date: 20170206
  Transmission Date: 20170428
  Serious: Yes (Hospitalization, Other)
  Sender: FDA-Public Use
  Company Number: PHHY2016IT178022

PATIENT
  Age: 50 Year
  Sex: Male

DRUGS (4)
  1. REVOLADE [Suspect]
     Active Substance: ELTROMBOPAG
     Dosage: 50 MG, QD
     Route: 048
     Dates: start: 20161206, end: 20161213
  2. REVOLADE [Suspect]
     Active Substance: ELTROMBOPAG
     Indication: IMMUNE THROMBOCYTOPENIC PURPURA
     Dosage: 50 MG, QD
     Route: 048
     Dates: start: 20161115, end: 20161124
  3. REVOLADE [Suspect]
     Active Substance: ELTROMBOPAG
     Dosage: 50/25 MG ALTERNATE DOSING, QD
     Route: 048
     Dates: start: 20161213, end: 20161216
  4. DELTACORTENE [Suspect]
     Active Substance: PREDNISONE
     Indication: PRODUCT USED FOR UNKNOWN INDICATION
     Dosage: 5 MG, QD
     Route: 065

REACTIONS (4)
  - Thrombocytopenia [Unknown]
  - Thrombocytosis [Recovering/Resolving]
  - Conjunctival haemorrhage [Unknown]
  - Thrombophlebitis superficial [Recovering/Resolving]

NARRATIVE: CASE EVENT DATE: 20161124
